FAERS Safety Report 16957185 (Version 2)
Quarter: 2019Q4

REPORT INFORMATION
  Report Type: Spontaneous
  Country: CN (occurrence: CN)
  Receive Date: 20191024
  Receipt Date: 20191120
  Transmission Date: 20200122
  Serious: Yes (Death)
  Sender: FDA-Public Use
  Company Number: CN-BAYER-2019-185904

PATIENT
  Age: 57 Year
  Sex: Male

DRUGS (2)
  1. IMMUNOGLOBULINS NOS [Concomitant]
     Active Substance: IMMUNE GLOBULIN NOS
     Indication: COLORECTAL CANCER METASTATIC
  2. STIVARGA [Suspect]
     Active Substance: REGORAFENIB
     Indication: COLORECTAL CANCER METASTATIC
     Route: 048

REACTIONS (2)
  - Hepatic failure [Fatal]
  - Renal failure [Fatal]
